FAERS Safety Report 8790703 (Version 2)
Quarter: 2012Q4

REPORT INFORMATION
  Report Type: Spontaneous
  Country: DE (occurrence: None)
  Receive Date: 20120907
  Receipt Date: 20120917
  Transmission Date: 20130627
  Serious: Yes (Hospitalization)
  Sender: FDA-Public Use
  Company Number: 2012AP002876

PATIENT
  Age: 48 Year
  Sex: Female

DRUGS (5)
  1. OLANZAPINE [Suspect]
     Indication: CATATONIC SCHIZOPHRENIA
  2. CLOZAPINE (CLOZAPINE) [Concomitant]
  3. OLANZAPINE (OLANZAPINE) [Concomitant]
  4. HALOPERIDOL (HALOPERIDOL) [Concomitant]
  5. LORAZEPAM (LORAZEPAM) [Concomitant]

REACTIONS (1)
  - Hypothermia [None]
